FAERS Safety Report 25879336 (Version 1)
Quarter: 2025Q4

REPORT INFORMATION
  Report Type: Report from Study
  Country: US (occurrence: US)
  Receive Date: 20251003
  Receipt Date: 20251003
  Transmission Date: 20260118
  Serious: Yes (Hospitalization)
  Sender: ABBVIE
  Company Number: US-ABBVIE-6482998

PATIENT
  Sex: Female

DRUGS (1)
  1. HUMIRA [Suspect]
     Active Substance: ADALIMUMAB
     Indication: Psoriatic arthropathy
     Route: 058
     Dates: start: 2023

REACTIONS (3)
  - Chronic obstructive pulmonary disease [Recovering/Resolving]
  - Rhinovirus infection [Recovering/Resolving]
  - Pneumonia [Recovering/Resolving]
